FAERS Safety Report 16523600 (Version 4)
Quarter: 2020Q1

REPORT INFORMATION
  Report Type: Spontaneous
  Country: IT (occurrence: IT)
  Receive Date: 20190703
  Receipt Date: 20200114
  Transmission Date: 20200409
  Serious: Yes (Other)
  Sender: FDA-Public Use
  Company Number: IT-ROCHE-2348465

PATIENT
  Age: 73 Year
  Sex: Female

DRUGS (9)
  1. OXALIPLATIN. [Suspect]
     Active Substance: OXALIPLATIN
     Indication: COLON CANCER
     Dosage: LAST DOSE 10/JUN/2019
     Route: 042
     Dates: start: 20190513
  2. FLUOROURACILE TEVA [Suspect]
     Active Substance: FLUOROURACIL
     Route: 042
  3. DOXIFLURIDINE [Suspect]
     Active Substance: DOXIFLURIDINE
     Indication: COLON CANCER
     Dosage: 480 MG, CYCLIC
     Route: 040
     Dates: start: 20190610
  4. AVASTIN [Suspect]
     Active Substance: BEVACIZUMAB
     Route: 042
     Dates: start: 20190610
  5. DOXIFLURIDINE [Suspect]
     Active Substance: DOXIFLURIDINE
     Dosage: 480 MG, CYCLIC
     Route: 040
     Dates: start: 20190513, end: 20190610
  6. FLUOROURACILE TEVA [Suspect]
     Active Substance: FLUOROURACIL
     Route: 040
     Dates: start: 20190513, end: 20190610
  7. AVASTIN [Suspect]
     Active Substance: BEVACIZUMAB
     Indication: COLON CANCER
     Dosage: LAST DOSE ON 10/JUN/2019
     Route: 042
     Dates: start: 20190513
  8. OXALIPLATIN. [Suspect]
     Active Substance: OXALIPLATIN
     Route: 042
     Dates: start: 20190610
  9. FLUOROURACILE TEVA [Suspect]
     Active Substance: FLUOROURACIL
     Indication: COLON CANCER
     Dosage: LAST DOSE ON 10/JUN/2019
     Route: 042
     Dates: start: 20190513

REACTIONS (1)
  - Anaemia [Not Recovered/Not Resolved]

NARRATIVE: CASE EVENT DATE: 20190604
